FAERS Safety Report 20947759 (Version 1)
Quarter: 2022Q2

REPORT INFORMATION
  Report Type: Spontaneous
  Country: FR (occurrence: FR)
  Receive Date: 20220611
  Receipt Date: 20220611
  Transmission Date: 20220721
  Serious: Yes (Hospitalization)
  Sender: FDA-Public Use
  Company Number: None

PATIENT
  Age: 32 Year
  Sex: Male

DRUGS (9)
  1. BROMAZEPAM [Suspect]
     Active Substance: BROMAZEPAM
     Route: 065
  2. DIAZEPAM [Suspect]
     Active Substance: DIAZEPAM
     Route: 065
  3. MIRTAZAPINE [Suspect]
     Active Substance: MIRTAZAPINE
     Route: 065
  4. SULPIRIDE [Suspect]
     Active Substance: SULPIRIDE
     Route: 065
  5. TRANXENE [Suspect]
     Active Substance: CLORAZEPATE DIPOTASSIUM
     Route: 065
  6. METHADONE HYDROCHLORIDE [Suspect]
     Active Substance: METHADONE HYDROCHLORIDE
     Route: 065
  7. CANNABIS SATIVA SUBSP. INDICA TOP [Suspect]
     Active Substance: CANNABIS SATIVA SUBSP. INDICA TOP
     Route: 065
  8. COCAINE [Suspect]
     Active Substance: COCAINE
     Route: 065
  9. MAPROTILINE HYDROCHLORIDE [Suspect]
     Active Substance: MAPROTILINE HYDROCHLORIDE
     Route: 065

REACTIONS (6)
  - Renal failure [Recovered/Resolved]
  - Confusional state [Recovered/Resolved]
  - Rhabdomyolysis [Recovered/Resolved]
  - Extrapyramidal disorder [Recovered/Resolved]
  - Pneumonia aspiration [Recovered/Resolved]
  - Poisoning [Recovered/Resolved]
